FAERS Safety Report 21128389 (Version 2)
Quarter: 2022Q3

REPORT INFORMATION
  Report Type: Spontaneous
  Country: US (occurrence: US)
  Receive Date: 20220725
  Receipt Date: 20220726
  Transmission Date: 20221027
  Serious: No
  Sender: FDA-Public Use
  Company Number: US-PFIZER INC-PV202200028095

PATIENT
  Age: 68 Year
  Sex: Female
  Weight: 56.689 kg

DRUGS (5)
  1. MEKTOVI [Suspect]
     Active Substance: BINIMETINIB
     Indication: Malignant melanoma
     Dosage: 15 MG, 2X/DAY (3 TABLETS BY MOUTH TWICE A DAY)
     Route: 048
     Dates: start: 202101, end: 2021
  2. MEKTOVI [Suspect]
     Active Substance: BINIMETINIB
     Dosage: UNK
     Dates: start: 202106
  3. BRAFTOVI [Suspect]
     Active Substance: ENCORAFENIB
     Indication: Malignant melanoma
     Dosage: 75 MG, 1X/DAY (4 CAPSULES ONCE A DAY BY MOUTH)
     Route: 048
     Dates: start: 202101, end: 2021
  4. BRAFTOVI [Suspect]
     Active Substance: ENCORAFENIB
     Dosage: UNK
     Dates: start: 202106
  5. MECLIZINE [Concomitant]
     Active Substance: MECLIZINE HYDROCHLORIDE
     Dosage: 25 MG

REACTIONS (2)
  - Diarrhoea [Unknown]
  - Rash [Unknown]
